FAERS Safety Report 11513547 (Version 1)
Quarter: 2015Q3

REPORT INFORMATION
  Report Type: Spontaneous
  Country: US (occurrence: US)
  Receive Date: 20150903
  Receipt Date: 20150903
  Transmission Date: 20151125
  Serious: No
  Sender: FDA-Public Use
  Company Number: US-ELI_LILLY_AND_COMPANY-US201210007584

PATIENT
  Age: 51 Year
  Sex: Female

DRUGS (2)
  1. MULTIPLE VITAMINS [Concomitant]
     Active Substance: VITAMINS
  2. CYMBALTA [Suspect]
     Active Substance: DULOXETINE HYDROCHLORIDE
     Indication: ANXIETY
     Dosage: 60 MG, QD
     Dates: start: 201204, end: 20121016

REACTIONS (7)
  - Tremor [Unknown]
  - Irritability [Unknown]
  - Drug withdrawal syndrome [Unknown]
  - Vomiting [Unknown]
  - Pain [Unknown]
  - Headache [Unknown]
  - Dizziness [Unknown]
